FAERS Safety Report 10977973 (Version 1)
Quarter: 2015Q2

REPORT INFORMATION
  Report Type: Spontaneous
  Country: FR (occurrence: FR)
  Receive Date: 20150402
  Receipt Date: 20150402
  Transmission Date: 20150821
  Serious: Yes (Other)
  Sender: FDA-Public Use
  Company Number: FR-ROCHE-1559104

PATIENT
  Age: 11 Year
  Sex: Male
  Weight: 60 kg

DRUGS (3)
  1. AERIUS [Concomitant]
     Active Substance: DESLORATADINE
  2. XOLAIR [Suspect]
     Active Substance: OMALIZUMAB
     Indication: ASTHMA
     Dosage: (4 SYRINGES) EVERY 15 DAYS.
     Route: 058
     Dates: start: 201405, end: 201411
  3. SERETIDE [Concomitant]
     Active Substance: FLUTICASONE FUROATE\SALMETEROL XINAFOATE

REACTIONS (2)
  - Asthma [Recovered/Resolved]
  - Angioedema [Recovered/Resolved]

NARRATIVE: CASE EVENT DATE: 201411
